FAERS Safety Report 13002756 (Version 1)
Quarter: 2016Q4

REPORT INFORMATION
  Report Type: Spontaneous
  Country: US (occurrence: US)
  Receive Date: 20161206
  Receipt Date: 20161206
  Transmission Date: 20170207
  Serious: No
  Sender: FDA-Public Use
  Company Number: US-JNJFOC-20161111725

PATIENT
  Age: 68 Year
  Sex: Female
  Weight: 79.38 kg

DRUGS (2)
  1. STELARA [Suspect]
     Active Substance: USTEKINUMAB
     Indication: PSORIASIS
     Route: 058
     Dates: start: 2016, end: 20161109
  2. RESTORIL [Concomitant]
     Active Substance: TEMAZEPAM
     Indication: SLEEP DISORDER
     Dosage: PRO RE NATA : WHEN CIRCUMSTANCES ARISE
     Route: 065

REACTIONS (4)
  - Cough [Recovering/Resolving]
  - Nasopharyngitis [Unknown]
  - Sinus congestion [Recovered/Resolved]
  - Rhinorrhoea [Recovered/Resolved]

NARRATIVE: CASE EVENT DATE: 201611
